FAERS Safety Report 23955457 (Version 1)
Quarter: 2024Q2

REPORT INFORMATION
  Report Type: Spontaneous
  Country: NL (occurrence: NL)
  Receive Date: 20240610
  Receipt Date: 20240610
  Transmission Date: 20240716
  Serious: Yes (Hospitalization, Other)
  Sender: FDA-Public Use
  Company Number: None

PATIENT
  Age: 72 Year
  Sex: Male
  Weight: 81.7 kg

DRUGS (9)
  1. KEPPRA [Suspect]
     Active Substance: LEVETIRACETAM
     Indication: Epilepsy
     Dosage: 2X PER DAY 3 TABLETS
     Dates: start: 20240308
  2. LACOSAMIDE [Suspect]
     Active Substance: LACOSAMIDE
     Indication: Epilepsy
     Dosage: 2X PER DAY, 1 EACH
     Dates: start: 20240308
  3. VALPROIC ACID [Suspect]
     Active Substance: VALPROIC ACID
     Indication: Epilepsy
     Dosage: 2X PER DAY 2 TABLETS
     Dates: start: 20240424, end: 20240514
  4. TIOTROPIUM [Concomitant]
     Active Substance: TIOTROPIUM
     Indication: Product used for unknown indication
     Dosage: TIOTROPIUM INHALATION CAPSULE 18 UG
  5. BECLOMETHASONE\FORMOTEROL [Concomitant]
     Active Substance: BECLOMETHASONE\FORMOTEROL
     Indication: Product used for unknown indication
     Dosage: AEROSOL, AEROSOL 200/6 ?G/DOSIS (MICROGRAM PER DOSIS)
  6. SOTALOL [Concomitant]
     Active Substance: SOTALOL
     Indication: Product used for unknown indication
     Dosage: 40 MILLIGRAM
  7. EDOXABAN [Concomitant]
     Active Substance: EDOXABAN
     Indication: Product used for unknown indication
     Dosage: 60 MILLIGRAM
  8. PAROXETINE [Concomitant]
     Active Substance: PAROXETINE
     Indication: Product used for unknown indication
     Dosage: 20 MILLIGRAM
  9. CLOBAZAM [Concomitant]
     Active Substance: CLOBAZAM
     Indication: Product used for unknown indication
     Dosage: 10 MILLIGRAM

REACTIONS (9)
  - Urinary incontinence [Recovering/Resolving]
  - Erythema [Recovering/Resolving]
  - Disturbance in attention [Recovering/Resolving]
  - Aphasia [Recovering/Resolving]
  - Depressed level of consciousness [Recovering/Resolving]
  - Catatonia [Recovering/Resolving]
  - Somnolence [Recovering/Resolving]
  - Cold sweat [Recovering/Resolving]
  - Fall [Recovering/Resolving]

NARRATIVE: CASE EVENT DATE: 20240101
